FAERS Safety Report 16837800 (Version 6)
Quarter: 2020Q1

REPORT INFORMATION
  Report Type: Report from Study
  Country: None (occurrence: US)
  Receive Date: 20190923
  Receipt Date: 20200313
  Transmission Date: 20200409
  Serious: Yes (Other)
  Sender: FDA-Public Use
  Company Number: US-ABBVIE-19K-163-2795047-00

PATIENT
  Sex: Female

DRUGS (3)
  1. TRAMADOL. [Concomitant]
     Active Substance: TRAMADOL
     Indication: PRODUCT USED FOR UNKNOWN INDICATION
  2. HUMIRA [Suspect]
     Active Substance: ADALIMUMAB
     Indication: RHEUMATOID ARTHRITIS
     Route: 058
     Dates: start: 20191008
  3. HUMIRA [Suspect]
     Active Substance: ADALIMUMAB
     Indication: PSORIATIC ARTHROPATHY
     Dosage: CITRATE FREE
     Route: 058
     Dates: start: 201403, end: 201907

REACTIONS (27)
  - Injection site pain [Recovered/Resolved]
  - Nausea [Recovering/Resolving]
  - Injection site swelling [Recovered/Resolved]
  - Peripheral swelling [Recovering/Resolving]
  - Injection site pain [Recovering/Resolving]
  - Scar [Recovering/Resolving]
  - Rash pruritic [Recovering/Resolving]
  - Injection site erythema [Recovered/Resolved]
  - Rotator cuff syndrome [Recovering/Resolving]
  - Dyspnoea exertional [Not Recovered/Not Resolved]
  - Loss of personal independence in daily activities [Recovering/Resolving]
  - Musculoskeletal pain [Recovering/Resolving]
  - Pain [Recovering/Resolving]
  - Trigger finger [Unknown]
  - Rash erythematous [Recovering/Resolving]
  - Arthralgia [Recovering/Resolving]
  - Exostosis [Unknown]
  - Musculoskeletal stiffness [Recovering/Resolving]
  - Injection site erythema [Recovering/Resolving]
  - Malaise [Recovering/Resolving]
  - Joint swelling [Recovering/Resolving]
  - Injection site haemorrhage [Unknown]
  - Pain in extremity [Recovering/Resolving]
  - Drug ineffective [Unknown]
  - Fatigue [Recovering/Resolving]
  - Impaired self-care [Recovering/Resolving]
  - Tendon disorder [Unknown]

NARRATIVE: CASE EVENT DATE: 2018
